FAERS Safety Report 19723750 (Version 1)
Quarter: 2021Q3

REPORT INFORMATION
  Report Type: Spontaneous
  Country: US (occurrence: US)
  Receive Date: 20210819
  Receipt Date: 20210819
  Transmission Date: 20211014
  Serious: Yes (Hospitalization)
  Sender: FDA-Public Use
  Company Number: US-BAYER-2021-163412

PATIENT
  Age: 35 Year
  Sex: Female

DRUGS (1)
  1. CIPRO [Suspect]
     Active Substance: CIPROFLOXACIN HYDROCHLORIDE
     Indication: URINARY TRACT INFECTION
     Dosage: UNK
     Route: 048
     Dates: start: 2016

REACTIONS (6)
  - Urticaria [None]
  - Mass [None]
  - Rash [Recovered/Resolved]
  - Hospitalisation [None]
  - Skin exfoliation [None]
  - Hypersensitivity [None]

NARRATIVE: CASE EVENT DATE: 2016
